FAERS Safety Report 5530897-3 (Version None)
Quarter: 2007Q4

REPORT INFORMATION
  Report Type: 
  Country: None (occurrence: None)
  Receive Date: 20071130
  Receipt Date: 20071126
  Transmission Date: 20080405
  Serious: Yes (Other)
  Sender: FDA-Public Use
  Company Number: US-ASTRAZENECA-2007AC02300

PATIENT
  Age: 51 Year
  Sex: Female

DRUGS (1)
  1. ANASTROZOLE [Suspect]
     Dates: start: 20050401

REACTIONS (1)
  - ERYTHEMA NODOSUM [None]
